FAERS Safety Report 8061937-8 (Version None)
Quarter: 2012Q1

REPORT INFORMATION
  Report Type: 
  Country: None (occurrence: None)
  Receive Date: 20120123
  Receipt Date: 20120114
  Transmission Date: 20120608
  Serious: Yes (Death, Life-Threatening, Hospitalization)
  Sender: FDA-Public Use
  Company Number: US-JNJFOC-20070303558

PATIENT
  Sex: Female
  Weight: 67.6 kg

DRUGS (21)
  1. GOLIMUMAB [Suspect]
     Route: 058
     Dates: start: 20070222
  2. GOLIMUMAB [Suspect]
     Dosage: WEEK 12
     Route: 058
     Dates: start: 20060414
  3. GOLIMUMAB [Suspect]
     Dosage: WEEK 8
     Route: 058
     Dates: start: 20060316
  4. GOLIMUMAB [Suspect]
     Dosage: WEEK 4
     Route: 058
     Dates: start: 20060216
  5. CALCIUM WITH VITAMIN D [Concomitant]
     Indication: OSTEOPOROSIS
     Route: 048
  6. GOLIMUMAB [Suspect]
     Dosage: WEEK 48
     Route: 058
     Dates: start: 20061228
  7. CELEXA [Concomitant]
     Indication: DEPRESSION
     Route: 048
     Dates: start: 20061130
  8. SULINDAC [Concomitant]
     Indication: RHEUMATOID ARTHRITIS
     Route: 048
     Dates: start: 20051230
  9. GOLIMUMAB [Suspect]
     Dosage: WEEK 32
     Route: 058
     Dates: start: 20060907
  10. GOLIMUMAB [Suspect]
     Dosage: WEEK 40
     Route: 058
     Dates: start: 20061102
  11. PROTONIX [Concomitant]
     Indication: NAUSEA
     Route: 048
     Dates: start: 20060216, end: 20060226
  12. METHOTREXATE [Concomitant]
     Indication: RHEUMATOID ARTHRITIS
     Route: 030
     Dates: start: 20050701
  13. GOLIMUMAB [Suspect]
     Dosage: WEEK 24
     Route: 058
     Dates: start: 20060707
  14. GOLIMUMAB [Suspect]
     Dosage: WEEK 28
     Route: 058
     Dates: start: 20060808
  15. GOLIMUMAB [Suspect]
     Dosage: WEEK 0
     Route: 058
     Dates: start: 20060119
  16. GOLIMUMAB [Suspect]
     Dosage: WEEK 44
     Route: 058
     Dates: start: 20061130
  17. GOLIMUMAB [Suspect]
     Dosage: WEEK 36
     Route: 058
     Dates: start: 20061005
  18. FOSAMAX [Concomitant]
     Indication: OSTEOPOROSIS
     Route: 048
  19. MULTI-VITAMIN [Concomitant]
     Indication: NUTRITIONAL SUPPORT
     Route: 048
  20. GOLIMUMAB [Suspect]
     Indication: PSORIATIC ARTHROPATHY
     Dosage: WEEK 16
     Route: 058
     Dates: start: 20060512
  21. GOLIMUMAB [Suspect]
     Dosage: WEEK 20
     Route: 058
     Dates: start: 20060609

REACTIONS (2)
  - RADIATION OESOPHAGITIS [None]
  - SMALL CELL LUNG CANCER STAGE UNSPECIFIED [None]
